FAERS Safety Report 4376356-5 (Version None)
Quarter: 2004Q2

REPORT INFORMATION
  Report Type: 
  Country: None (occurrence: None)
  Receive Date: 20040612
  Receipt Date: 20040603
  Transmission Date: 20050107
  Serious: Yes (Hospitalization)
  Sender: FDA-Public Use
  Company Number: BE-JNJFOC-20040601411

PATIENT
  Age: 44 Year

DRUGS (3)
  1. REMICADE [Suspect]
     Indication: RHEUMATOID ARTHRITIS
     Route: 042
  2. METHOTREXATE [Concomitant]
  3. FEROGRAD [Concomitant]

REACTIONS (3)
  - HAEMOGLOBIN DECREASED [None]
  - HIP ARTHROPLASTY [None]
  - RED BLOOD CELL COUNT DECREASED [None]
